FAERS Safety Report 9380179 (Version 4)
Quarter: 2013Q3

REPORT INFORMATION
  Report Type: Spontaneous
  Country: US (occurrence: US)
  Receive Date: 20130702
  Receipt Date: 20130923
  Transmission Date: 20140515
  Serious: No
  Sender: FDA-Public Use
  Company Number: US-009507513-1306USA014552

PATIENT
  Sex: Female
  Weight: 68.27 kg

DRUGS (3)
  1. NUVARING [Suspect]
     Indication: CONTRACEPTION
     Dosage: UNK
     Route: 067
     Dates: start: 20080905, end: 20081208
  2. COMBIVENT [Concomitant]
     Indication: PRODUCT USED FOR UNKNOWN INDICATION
     Dosage: UNK
     Route: 055
     Dates: start: 1996
  3. PROAIR (ALBUTEROL SULFATE) [Concomitant]
     Indication: PRODUCT USED FOR UNKNOWN INDICATION
     Dosage: UNK
     Route: 055
     Dates: start: 1996

REACTIONS (10)
  - Post thrombotic syndrome [Unknown]
  - Deep vein thrombosis [Unknown]
  - Menstrual disorder [Unknown]
  - Endometrial ablation [Unknown]
  - Sinusitis [Recovering/Resolving]
  - Pneumonia [Unknown]
  - Otitis media [Unknown]
  - Irritable bowel syndrome [Unknown]
  - Appendicectomy [Unknown]
  - Liver disorder [Unknown]
